FAERS Safety Report 4283162-9 (Version None)
Quarter: 2004Q1

REPORT INFORMATION
  Report Type: 
  Country: None (occurrence: None)
  Receive Date: 20040122
  Receipt Date: 20040119
  Transmission Date: 20041129
  Serious: Yes (Other)
  Sender: FDA-Public Use
  Company Number: 2003-03240

PATIENT
  Age: 21 Month
  Sex: Male

DRUGS (2)
  1. IMUUNOGLOBULIN HUMAN ANTIRABIES [Suspect]
     Indication: IMMUNISATION
     Dates: start: 20030925
  2. RABAVERT [Suspect]
     Indication: PROPHYLAXIS
     Dosage: I.M.
     Route: 030
     Dates: start: 20030925

REACTIONS (2)
  - INJECTION SITE RASH [None]
  - PYREXIA [None]
